FAERS Safety Report 6473220-2 (Version None)
Quarter: 2009Q4

REPORT INFORMATION
  Report Type: 
  Country: None (occurrence: None)
  Receive Date: 20091204
  Receipt Date: 20080513
  Transmission Date: 20100525
  Serious: Yes (Hospitalization, Other)
  Sender: FDA-Public Use
  Company Number: US-ELI_LILLY_AND_COMPANY-US200805002533

PATIENT
  Sex: Female
  Weight: 104.31 kg

DRUGS (13)
  1. BYETTA [Suspect]
     Indication: TYPE 2 DIABETES MELLITUS
     Dosage: 10 UG, 2/D
     Route: 058
     Dates: start: 20060101
  2. NOVOLOG [Concomitant]
     Indication: TYPE 2 DIABETES MELLITUS
     Dosage: 6 U, EACH MORNING
     Route: 058
  3. NOVOLOG [Concomitant]
     Dosage: 7 U, DAILY (1/D)
     Route: 058
  4. NOVOLOG [Concomitant]
     Dosage: 10 U, EACH EVENING
     Route: 058
  5. LANTUS [Concomitant]
     Dosage: 50 U, EACH EVENING
     Route: 058
  6. EFFEXOR [Concomitant]
     Indication: ANXIETY
     Dosage: UNK, DAILY (1/D)
  7. LORAZEPAM [Concomitant]
     Indication: ANXIETY
     Dosage: 1 MG, DAILY (1/D)
     Route: 048
  8. SEROQUEL [Concomitant]
     Indication: SLEEP DISORDER
     Dosage: 100 MG, DAILY (1/D)
     Route: 048
  9. SIMVASTATIN [Concomitant]
     Indication: FLUID RETENTION
     Dosage: UNK, DAILY (1/D)
  10. LISINOPRIL [Concomitant]
     Indication: BLOOD PRESSURE INCREASED
     Dosage: 40 MG, DAILY (1/D)
     Route: 048
  11. KADIAN [Concomitant]
     Indication: BACK PAIN
     Dosage: 80 MG, UNK
     Route: 048
  12. GABAPENTIN [Concomitant]
     Indication: BACK PAIN
     Dosage: 300 MG, UNK
     Route: 048
  13. MORPHINE SULFATE [Concomitant]
     Indication: BACK PAIN
     Dosage: 30 MG, UNK
     Route: 048

REACTIONS (10)
  - ANGIOPLASTY [None]
  - BACK PAIN [None]
  - CARPAL TUNNEL SYNDROME [None]
  - COUGH [None]
  - DYSPNOEA [None]
  - HEART RATE IRREGULAR [None]
  - LOSS OF CONSCIOUSNESS [None]
  - NERVE COMPRESSION [None]
  - PAIN [None]
  - PNEUMONIA [None]
